FAERS Safety Report 5241451-5 (Version None)
Quarter: 2007Q1

REPORT INFORMATION
  Report Type: 
  Country: None (occurrence: None)
  Receive Date: 20070220
  Receipt Date: 20070213
  Transmission Date: 20070707
  Serious: Yes (Hospitalization, Other)
  Sender: FDA-Public Use
  Company Number: FR-AVENTIS-200710537FR

PATIENT
  Age: 36 Year
  Sex: Female

DRUGS (3)
  1. ARAVA [Suspect]
     Route: 048
     Dates: start: 20020101, end: 20050101
  2. NSAID'S [Concomitant]
     Indication: POLYARTHRITIS
  3. CORTICOSTEROIDS [Concomitant]
     Indication: POLYARTHRITIS

REACTIONS (11)
  - AREFLEXIA [None]
  - AUTONOMIC NERVOUS SYSTEM IMBALANCE [None]
  - FALL [None]
  - FRACTURE [None]
  - HYPOAESTHESIA [None]
  - MEDICATION ERROR [None]
  - ORTHOSTATIC HYPOTENSION [None]
  - PARAESTHESIA [None]
  - PERIPHERAL SENSORY NEUROPATHY [None]
  - SYNCOPE [None]
  - TOOTH FRACTURE [None]
